FAERS Safety Report 10574890 (Version 3)
Quarter: 2021Q4

REPORT INFORMATION
  Report Type: Spontaneous
  Country: JP (occurrence: JP)
  Receive Date: 20141110
  Receipt Date: 20211125
  Transmission Date: 20220303
  Serious: Yes (Hospitalization, Other)
  Sender: FDA-Public Use
  Company Number: JP-009507513-1411JPN003505

PATIENT
  Age: 55 Year
  Sex: Female

DRUGS (2)
  1. SITAGLIPTIN PHOSPHATE [Suspect]
     Active Substance: SITAGLIPTIN PHOSPHATE
     Indication: Type 2 diabetes mellitus
     Dosage: DAILY DOSE UNKNOWN
     Route: 048
  2. LITHEUM [Concomitant]
     Dosage: DAILY DOSE UNKNOWN
     Route: 065

REACTIONS (1)
  - Tubulointerstitial nephritis [Recovered/Resolved]

NARRATIVE: CASE EVENT DATE: 20140101
